FAERS Safety Report 6474980-7 (Version None)
Quarter: 2009Q4

REPORT INFORMATION
  Report Type: 
  Country: None (occurrence: None)
  Receive Date: 20091204
  Receipt Date: 20090629
  Transmission Date: 20100525
  Serious: Yes (Hospitalization, Other)
  Sender: FDA-Public Use
  Company Number: US-ELI_LILLY_AND_COMPANY-US200903000788

PATIENT
  Sex: Female
  Weight: 72.562 kg

DRUGS (10)
  1. BYETTA [Suspect]
     Indication: TYPE 2 DIABETES MELLITUS
     Dosage: 5 UG, 2/D
     Route: 058
     Dates: start: 20051219, end: 20060119
  2. BYETTA [Suspect]
     Dosage: 10 UG, 2/D
     Route: 058
     Dates: start: 20060120, end: 20060601
  3. BYETTA [Suspect]
     Dosage: 10 UG, 2/D
     Route: 058
     Dates: start: 20060801
  4. METFORMIN HCL [Concomitant]
     Indication: TYPE 2 DIABETES MELLITUS
     Dosage: UNK, UNKNOWN
     Route: 048
  5. GLIPIZIDE [Concomitant]
     Indication: TYPE 2 DIABETES MELLITUS
     Dosage: UNK, UNKNOWN
     Route: 048
  6. FUROSEMIDE [Concomitant]
     Dosage: UNK, UNKNOWN
     Route: 048
  7. SPIRONOLACTONE [Concomitant]
     Dosage: UNK, UNKNOWN
     Route: 048
  8. TOPROL-XL [Concomitant]
     Dosage: UNK, UNKNOWN
     Route: 048
  9. LIPITOR [Concomitant]
     Dosage: UNK, UNKNOWN
     Route: 048
  10. BONIVA [Concomitant]
     Dosage: UNK, UNKNOWN
     Route: 048

REACTIONS (9)
  - AORTIC STENOSIS [None]
  - DIZZINESS [None]
  - FALL [None]
  - GAIT DISTURBANCE [None]
  - HIP FRACTURE [None]
  - MYOCARDIAL ISCHAEMIA [None]
  - REVISION OF INTERNAL FIXATION [None]
  - VENTRICULAR DYSFUNCTION [None]
  - VISUAL ACUITY REDUCED [None]
